FAERS Safety Report 18723726 (Version 2)
Quarter: 2021Q1

REPORT INFORMATION
  Report Type: Spontaneous
  Country: US (occurrence: US)
  Receive Date: 20210111
  Receipt Date: 20210123
  Transmission Date: 20210419
  Serious: No
  Sender: FDA-Public Use
  Company Number: US-SHILPA MEDICARE LIMITED-SML-US-2021-00018

PATIENT

DRUGS (2)
  1. AZACITIDINE FOR INJECTION [Suspect]
     Active Substance: AZACITIDINE
     Indication: PRODUCT USED FOR UNKNOWN INDICATION
     Route: 058
     Dates: start: 20200328
  2. AZACITIDINE FOR INJECTION [Suspect]
     Active Substance: AZACITIDINE
     Route: 058
     Dates: start: 20200329

REACTIONS (3)
  - Medication error [Unknown]
  - No adverse event [Unknown]
  - Product physical consistency issue [Unknown]

NARRATIVE: CASE EVENT DATE: 20200328
